FAERS Safety Report 5533718-8 (Version None)
Quarter: 2007Q4

REPORT INFORMATION
  Report Type: 
  Country: None (occurrence: None)
  Receive Date: 20071204
  Receipt Date: 20071107
  Transmission Date: 20080405
  Serious: No
  Sender: FDA-Public Use
  Company Number: US-BOEHRINGER INGELHEIM PHARMACEUTICALS, INC.-2007-BP-24070BP

PATIENT
  Age: 69 Year
  Sex: Male

DRUGS (9)
  1. MIRAPEX [Suspect]
     Indication: PARKINSON'S DISEASE
     Route: 048
     Dates: start: 20071103
  2. CYMBALTA [Suspect]
     Indication: DEPRESSION
     Dates: start: 20071001
  3. BENICAR [Concomitant]
     Indication: HYPERTENSION
  4. NORVASC [Concomitant]
     Indication: HYPERTENSION
  5. AVANDIA [Concomitant]
     Indication: DIABETES MELLITUS
  6. GLUCOTROL XL [Concomitant]
     Indication: DIABETES MELLITUS
  7. METOPROLOL [Concomitant]
     Indication: HYPERTENSION
  8. LIPITOR [Concomitant]
     Indication: BLOOD CHOLESTEROL INCREASED
  9. ASPIRIN [Concomitant]

REACTIONS (2)
  - BLOOD GLUCOSE DECREASED [None]
  - NAUSEA [None]
